FAERS Safety Report 9677475 (Version 3)
Quarter: 2014Q2

REPORT INFORMATION
  Report Type: Report from Study
  Country: US (occurrence: US)
  Receive Date: 20131108
  Receipt Date: 20140528
  Transmission Date: 20141212
  Serious: Yes (Other)
  Sender: FDA-Public Use
  Company Number: PHEH2013US011010

PATIENT
  Sex: Male

DRUGS (1)
  1. GILENYA [Suspect]
     Indication: MULTIPLE SCLEROSIS
     Dosage: 0.5 MG, QD
     Route: 048
     Dates: start: 20130415

REACTIONS (13)
  - Gastrooesophageal reflux disease [Recovering/Resolving]
  - Concomitant disease aggravated [Recovering/Resolving]
  - Blood urine present [Not Recovered/Not Resolved]
  - Vitreous floaters [Recovered/Resolved]
  - Cognitive disorder [Recovered/Resolved]
  - Eye disorder [Not Recovered/Not Resolved]
  - Head discomfort [Recovered/Resolved]
  - Hyperhidrosis [Unknown]
  - Cold sweat [Unknown]
  - Neck pain [Not Recovered/Not Resolved]
  - Multiple sclerosis relapse [Not Recovered/Not Resolved]
  - Headache [Recovered/Resolved]
  - Vision blurred [Recovered/Resolved]
